FAERS Safety Report 5204368-8 (Version None)
Quarter: 2007Q1

REPORT INFORMATION
  Report Type: 
  Country: None (occurrence: None)
  Receive Date: 20070110
  Receipt Date: 20060306
  Transmission Date: 20070707
  Serious: No
  Sender: FDA-Public Use
  Company Number: US-BRISTOL-MYERS SQUIBB COMPANY-13303714

PATIENT
  Age: 24 Year
  Sex: Female

DRUGS (4)
  1. ABILIFY [Suspect]
     Indication: BIPOLAR DISORDER
     Dosage: 0.5 OR 1 TABLET DAILY EACH EVENING
     Route: 048
  2. CONTRACEPTIVE [Concomitant]
     Indication: CONTRACEPTION
     Route: 048
  3. LAMICTAL [Concomitant]
  4. LORAZEPAM [Concomitant]

REACTIONS (3)
  - NAUSEA [None]
  - VOMITING [None]
  - WEIGHT INCREASED [None]
